FAERS Safety Report 6983975 (Version 3)
Quarter: 2014Q1

REPORT INFORMATION
  Report Type: Spontaneous
  Country: US (occurrence: US)
  Receive Date: 20090501
  Receipt Date: 20140310
  Transmission Date: 20141002
  Serious: Yes (Hospitalization, Other)
  Sender: FDA-Public Use
  Company Number: US-ALEXION-A200700035

PATIENT
  Age: 54 Year
  Sex: Male

DRUGS (3)
  1. SOLIRIS [Suspect]
     Indication: PAROXYSMAL NOCTURNAL HAEMOGLOBINURIA
     Dosage: 600 MG, SINGLE
     Route: 042
     Dates: start: 20070620, end: 20070711
  2. SOLIRIS [Suspect]
     Dosage: UNK, SINGLE
     Route: 042
     Dates: start: 20070828, end: 20070828
  3. SOLIRIS [Suspect]
     Dosage: 900 MG, SINGLE
     Route: 042
     Dates: start: 20070918

REACTIONS (13)
  - Neutropenia [Unknown]
  - Blood count abnormal [Unknown]
  - Haemoglobinuria [Not Recovered/Not Resolved]
  - Haemoglobin decreased [Unknown]
  - Cholelithiasis [Unknown]
  - Smear site unspecified abnormal [Unknown]
  - Jaundice [Recovering/Resolving]
  - Pyrexia [Not Recovered/Not Resolved]
  - Anaemia [Recovered/Resolved]
  - Haemolysis [Unknown]
  - Vomiting [Unknown]
  - Nausea [Unknown]
  - Cough [Unknown]
